FAERS Safety Report 5218227-8 (Version None)
Quarter: 2007Q1

REPORT INFORMATION
  Report Type: 
  Country: None (occurrence: None)
  Receive Date: 20070124
  Receipt Date: 20070116
  Transmission Date: 20070707
  Serious: Yes (Other)
  Sender: FDA-Public Use
  Company Number: US-PFIZER INC-2007004983

PATIENT
  Sex: Female

DRUGS (2)
  1. CADUET [Suspect]
     Indication: HYPERTENSION
     Dosage: TEXT:5/10MG
     Dates: start: 20061215, end: 20070102
  2. CADUET [Suspect]
     Indication: BLOOD CHOLESTEROL INCREASED

REACTIONS (2)
  - BLOOD PRESSURE INCREASED [None]
  - HEADACHE [None]
